FAERS Safety Report 7482930-X (Version None)
Quarter: 2011Q2

REPORT INFORMATION
  Report Type: 
  Country: None (occurrence: None)
  Receive Date: 20110516
  Receipt Date: 20110210
  Transmission Date: 20111010
  Serious: No
  Sender: FDA-Public Use
  Company Number: US-BAYER-2011-014595

PATIENT
  Age: 70 Year
  Sex: Male
  Weight: 97 kg

DRUGS (10)
  1. SIMVASTATIN [Concomitant]
  2. ALEVE (CAPLET) [Suspect]
     Indication: ARTHRITIS
     Dosage: 220 MG, BID
     Dates: start: 20090101
  3. LIPITOR [Concomitant]
  4. METFORMIN HCL [Concomitant]
  5. ENALAPRIL MALEATE [Concomitant]
  6. STOOL SOFTENER [Concomitant]
  7. ASPIRIN [Concomitant]
  8. PRASUGREL [Concomitant]
  9. HYDROCHLOROTHIAZIDE [Concomitant]
  10. MUCINEX [Concomitant]

REACTIONS (1)
  - NO ADVERSE EVENT [None]
